FAERS Safety Report 16621797 (Version 1)
Quarter: 2019Q3

REPORT INFORMATION
  Report Type: Spontaneous
  Country: DE (occurrence: DE)
  Receive Date: 20190723
  Receipt Date: 20190723
  Transmission Date: 20191004
  Serious: Yes (Life-Threatening, Hospitalization)
  Sender: FDA-Public Use
  Company Number: DE-TEVA-2019-DE-1079787

PATIENT
  Age: 73 Year
  Sex: Female
  Weight: 74 kg

DRUGS (9)
  1. TORASEMID [Concomitant]
     Active Substance: TORSEMIDE
     Dosage: 20 MG, 1-1-0-0, TABLET
     Route: 048
  2. COTRIM FORTE 800MG/160MG [Concomitant]
     Dosage: 960 MG, 1-0-0-0 3X / WEEK, TABLET
     Route: 048
  3. PANTOPRAZOL [Concomitant]
     Active Substance: PANTOPRAZOLE SODIUM
     Dosage: 40 MG, 1-0-0-0, TABLET
     Route: 048
  4. AMLODIPIN [Concomitant]
     Active Substance: AMLODIPINE BESYLATE
     Dosage: 5 MG, 1-0-0-0, TABLET
     Route: 048
  5. CYCLOPHOSPHAMID [Suspect]
     Active Substance: CYCLOPHOSPHAMIDE
     Dosage: 7.5 MG / M2, SCHEME, SOLUTION FOR INJECTION / INFUSION
     Route: 042
  6. L-THYROXIN 150 [Concomitant]
     Dosage: 150 MICROGRAM, 1-0-0-0, TABLET
     Route: 048
  7. SITAGLIPTIN [Concomitant]
     Active Substance: SITAGLIPTIN
     Dosage: 25 MG, 1-0-0-0, TABLET
     Route: 048
  8. VIGANTOLETTEN 1000 IE [Concomitant]
     Dosage: 1000 IE, 1-0-0-0, TABLET
     Route: 048
  9. PREDNISOLON [Suspect]
     Active Substance: PREDNISOLONE
     Dosage: 5 MG, 1-0-0-0, TABLET
     Route: 048

REACTIONS (5)
  - Hypotension [Unknown]
  - Pyrexia [Unknown]
  - Fatigue [Unknown]
  - Sepsis [Unknown]
  - General physical health deterioration [Unknown]
